FAERS Safety Report 10333282 (Version 2)
Quarter: 2014Q3

REPORT INFORMATION
  Report Type: Other
  Country: DK (occurrence: AU)
  Receive Date: 20140722
  Receipt Date: 20140825
  Transmission Date: 20150326
  Serious: Yes (Hospitalization)
  Sender: FDA-Public Use
  Company Number: AU-FRI-1000069177

PATIENT
  Age: 51 Year
  Sex: Male
  Weight: 75 kg

DRUGS (4)
  1. CITALOPRAM [Suspect]
     Active Substance: CITALOPRAM HYDROBROMIDE
     Route: 048
  2. QUETIAPINE [Suspect]
     Active Substance: QUETIAPINE
     Route: 048
  3. QUINAPRIL [Suspect]
     Active Substance: QUINAPRIL\QUINAPRIL HYDROCHLORIDE
     Route: 048
  4. AMITRIPTYLINE [Suspect]
     Active Substance: AMITRIPTYLINE
     Dosage: }2 GRAM
     Route: 048

REACTIONS (2)
  - Electrocardiogram abnormal [Unknown]
  - Circulatory collapse [Unknown]
